FAERS Safety Report 4983355-9 (Version None)
Quarter: 2006Q2

REPORT INFORMATION
  Report Type: 
  Country: None (occurrence: None)
  Receive Date: 20060419
  Receipt Date: 20060406
  Transmission Date: 20061013
  Serious: Yes (Hospitalization, Other)
  Sender: FDA-Public Use
  Company Number: 2006EU001142

PATIENT
  Age: 67 Year
  Sex: Female
  Weight: 70 kg

DRUGS (3)
  1. PROTOPIC [Suspect]
     Indication: LICHEN PLANUS
     Dosage: 0.03 %, BID, TOPICAL
     Route: 061
     Dates: start: 20041206, end: 20051231
  2. HYPROMELLOSE (HYPROMELLOSE) [Suspect]
     Indication: LICHEN PLANUS
     Dosage: 1 DF, BID, TOPICAL
     Route: 061
     Dates: start: 20041206, end: 20051231
  3. NUTRIDORAL (PROTEINS NOS) [Concomitant]

REACTIONS (1)
  - TONGUE NEOPLASM MALIGNANT STAGE UNSPECIFIED [None]
